FAERS Safety Report 11152857 (Version 1)
Quarter: 2015Q2

REPORT INFORMATION
  Report Type: Other
  Country: FR (occurrence: FR)
  Receive Date: 20150601
  Receipt Date: 20150601
  Transmission Date: 20150821
  Serious: Yes (Death, Hospitalization, Other)
  Sender: FDA-Public Use
  Company Number: FR-MYLANLABS-2015M1018073

PATIENT

DRUGS (6)
  1. PANTOPRAZOLE [Concomitant]
     Active Substance: PANTOPRAZOLE SODIUM
     Dosage: 20 MG, QD
     Route: 048
  2. ESCITALOPRAM [Concomitant]
     Active Substance: ESCITALOPRAM OXALATE
     Dosage: 5 MG, QD
     Route: 048
  3. PARACETAMOL [Concomitant]
     Active Substance: ACETAMINOPHEN
     Route: 048
  4. COVERAM [Concomitant]
     Active Substance: AMLODIPINE\PERINDOPRIL
     Dosage: 1 DF, QD
     Route: 048
     Dates: end: 20150426
  5. FONDAPARINUX [Suspect]
     Active Substance: FONDAPARINUX
     Indication: DEEP VEIN THROMBOSIS
     Dosage: 7.5 MG, QD
     Route: 058
     Dates: start: 20150417, end: 20150426
  6. KARDEGIC [Suspect]
     Active Substance: ASPIRIN LYSINE
     Indication: CAROTID ARTERY STENOSIS
     Dosage: 75 MG, QD
     Route: 048
     Dates: start: 201206, end: 20150426

REACTIONS (4)
  - Ischaemic stroke [Unknown]
  - Haemoglobin decreased [Not Recovered/Not Resolved]
  - Death [Fatal]
  - Haematoma [Not Recovered/Not Resolved]

NARRATIVE: CASE EVENT DATE: 20150428
